FAERS Safety Report 24059579 (Version 1)
Quarter: 2024Q3

REPORT INFORMATION
  Report Type: Report from Study
  Country: MA (occurrence: MA)
  Receive Date: 20240708
  Receipt Date: 20240708
  Transmission Date: 20241017
  Serious: Yes (Other)
  Sender: REGENERON
  Company Number: MA-BAYER-2024A096489

PATIENT
  Age: 56 Year
  Sex: Male

DRUGS (1)
  1. EYLEA [Suspect]
     Active Substance: AFLIBERCEPT
     Indication: Macular degeneration
     Dosage: UNK, SOLUTION FOR INJECTION, 40 MG/ML
     Route: 031
     Dates: start: 20240423, end: 20240424

REACTIONS (1)
  - Syncope [Recovered/Resolved]

NARRATIVE: CASE EVENT DATE: 20240424
